FAERS Safety Report 6881012-5 (Version None)
Quarter: 2010Q3

REPORT INFORMATION
  Report Type: 
  Country: None (occurrence: None)
  Receive Date: 20100727
  Receipt Date: 20100716
  Transmission Date: 20110219
  Serious: Yes (Hospitalization)
  Sender: FDA-Public Use
  Company Number: US-BIOGENIDEC-2010BI022095

PATIENT
  Age: 44 Year
  Sex: Female

DRUGS (12)
  1. TYSABRI [Suspect]
     Indication: MULTIPLE SCLEROSIS
     Route: 042
     Dates: start: 20080516
  2. SUBOXONE [Concomitant]
     Indication: DRUG DEPENDENCE
     Route: 060
     Dates: start: 20090416, end: 20100701
  3. SUBOXONE [Concomitant]
     Indication: PAIN
     Route: 060
     Dates: start: 20090416, end: 20100701
  4. NEXIUM [Concomitant]
     Indication: GASTROOESOPHAGEAL REFLUX DISEASE
     Dates: start: 20080101
  5. REQUIP [Concomitant]
     Indication: RESTLESS LEGS SYNDROME
     Dates: start: 20080101
  6. BACLOFEN [Concomitant]
     Indication: MUSCLE SPASMS
     Dates: start: 20090107
  7. TRAZODONE [Concomitant]
     Indication: INSOMNIA
     Dates: start: 20080428
  8. CLONAZEPAM [Concomitant]
     Indication: RESTLESS LEGS SYNDROME
     Dates: start: 20080428
  9. CLONAZEPAM [Concomitant]
     Indication: ANXIETY
     Dates: start: 20080428
  10. TOPAMAX [Concomitant]
     Indication: MIGRAINE
     Dates: start: 20080101
  11. LEXAPRO [Concomitant]
     Indication: DEPRESSION
     Dates: start: 20080101
  12. ASPIRIN [Concomitant]
     Indication: ANTICOAGULANT THERAPY
     Dates: start: 20080811

REACTIONS (1)
  - RADICAL HYSTERECTOMY [None]
